FAERS Safety Report 14029493 (Version 1)
Quarter: 2017Q4

REPORT INFORMATION
  Report Type: Report from Study
  Country: DE (occurrence: DE)
  Receive Date: 20171002
  Receipt Date: 20171002
  Transmission Date: 20180321
  Serious: Yes (Hospitalization)
  Sender: FDA-Public Use
  Company Number: DE-BIOGEN-2015BI130071

PATIENT
  Age: 22 Year
  Sex: Female
  Weight: 83 kg

DRUGS (2)
  1. PLEGRIDY [Suspect]
     Active Substance: PEGINTERFERON BETA-1A
     Indication: MULTIPLE SCLEROSIS
     Route: 058
     Dates: start: 20140508, end: 20151201
  2. JODTHYROX [Concomitant]
     Active Substance: LEVOTHYROXINE SODIUM\POTASSIUM IODIDE
     Indication: HYPOTHYROIDISM
     Route: 065
     Dates: start: 2005

REACTIONS (2)
  - Influenza like illness [Recovered/Resolved]
  - Herpes pharyngitis [Recovered/Resolved]

NARRATIVE: CASE EVENT DATE: 20150508
